FAERS Safety Report 17517775 (Version 1)
Quarter: 2020Q1

REPORT INFORMATION
  Report Type: Spontaneous
  Country: CN (occurrence: CN)
  Receive Date: 20200309
  Receipt Date: 20200309
  Transmission Date: 20200409
  Serious: Yes (Other)
  Sender: FDA-Public Use
  Company Number: CN-PFIZER INC-2020102374

PATIENT
  Age: 16 Year
  Sex: Female
  Weight: 40 kg

DRUGS (1)
  1. METHOTREXATE. [Suspect]
     Active Substance: METHOTREXATE
     Indication: BONE CANCER
     Dosage: 12.4 G, 1X/DAY
     Route: 041
     Dates: start: 20200225, end: 20200225

REACTIONS (4)
  - Palpitations [Unknown]
  - Cold sweat [Unknown]
  - Dizziness [Unknown]
  - Blood glucose decreased [Recovering/Resolving]

NARRATIVE: CASE EVENT DATE: 20200226
